FAERS Safety Report 7941938-8 (Version None)
Quarter: 2011Q4

REPORT INFORMATION
  Report Type: 
  Country: None (occurrence: None)
  Receive Date: 20111128
  Receipt Date: 20111118
  Transmission Date: 20120403
  Serious: Yes (Hospitalization)
  Sender: FDA-Public Use
  Company Number: US-BRACCO-007164

PATIENT
  Age: 50 Year
  Sex: Female

DRUGS (12)
  1. CYMBALTA [Concomitant]
  2. ZOCOR [Concomitant]
  3. ISOVUE-M 200 [Suspect]
     Indication: PAIN
     Dosage: 61.2 GRAMS IOPAMIDOL/100ML
     Route: 037
  4. LISINOPRIL [Concomitant]
  5. ISOVUE-M 200 [Suspect]
     Indication: SPINAL MYELOGRAM
     Dosage: 61.2 GRAMS IOPAMIDOL/100ML
     Route: 037
  6. SENOKOT [Concomitant]
  7. NEURONTIN [Concomitant]
  8. COLACE [Concomitant]
  9. ULTRAM [Concomitant]
  10. PRILOSEC [Concomitant]
  11. ASPIRIN [Concomitant]
  12. VICODIN [Concomitant]

REACTIONS (1)
  - BRAIN OEDEMA [None]
